FAERS Safety Report 7942101-7 (Version None)
Quarter: 2011Q4

REPORT INFORMATION
  Report Type: 
  Country: None (occurrence: None)
  Receive Date: 20111128
  Receipt Date: 20111124
  Transmission Date: 20120403
  Serious: Yes (Death)
  Sender: FDA-Public Use
  Company Number: JP-BAYER-2011-024017

PATIENT
  Age: 72 Year
  Sex: Male

DRUGS (15)
  1. NEXAVAR [Suspect]
     Dosage: 200 MG, TID
     Route: 048
     Dates: end: 20110301
  2. LYRICA [Concomitant]
     Dosage: DAILY DOSE 300 MG
     Route: 048
  3. PURSENNID [Concomitant]
     Dosage: 24 MG, QD
     Route: 048
  4. RABEPRAZOLE SODIUM [Concomitant]
     Dosage: 10 MG, OM
     Route: 048
  5. NEXAVAR [Suspect]
     Indication: HEPATIC NEOPLASM MALIGNANT
     Dosage: UNK
     Route: 048
  6. NEXAVAR [Suspect]
     Dosage: DAILY DOSE 400 MG
     Route: 048
     Dates: start: 20110301
  7. NEXAVAR [Suspect]
     Dosage: 200 MG, QD
     Route: 048
     Dates: start: 20110901
  8. CYTOTEC [Concomitant]
     Dosage: 100 MG, TID
     Route: 048
  9. ASPARA POTASSIUM [Concomitant]
     Dosage: 300 MG, TID
     Route: 048
  10. REBAMIPIDE [Concomitant]
     Dosage: 100 MG, TID
     Route: 048
  11. LOXONIN [Concomitant]
     Dosage: 60 MG, TID
     Route: 048
  12. UBIRON [Concomitant]
     Dosage: 200 MG, TID
     Route: 048
  13. PREDNISOLONE [Concomitant]
     Dosage: 5 MG, OM
     Route: 048
  14. LENDORMIN D [Concomitant]
     Dosage: 24 MG, QD
     Route: 048
  15. PRIMPERAN TAB [Concomitant]
     Dosage: 5 MG, TID
     Route: 048

REACTIONS (2)
  - LYMPHANGIOSIS CARCINOMATOSA [None]
  - DIARRHOEA [None]
